FAERS Safety Report 8622481 (Version 2)
Quarter: 2012Q4

REPORT INFORMATION
  Report Type: Spontaneous
  Country: CA (occurrence: None)
  Receive Date: 20120605
  Receipt Date: 20120921
  Transmission Date: 20130627
  Serious: Yes (Life-Threatening, Disabling)
  Sender: FDA-Public Use
  Company Number: 2012-002035

PATIENT
  Age: 68 Year
  Sex: Female
  Weight: 65.8 kg

DRUGS (3)
  1. ACTONEL [Suspect]
     Indication: OSTEOPENIA
     Route: 048
  2. INDERAL LA [Concomitant]
  3. ZOPICLONE (ZOPICLONE) [Concomitant]

REACTIONS (4)
  - Inflammation [None]
  - Oesophageal pain [None]
  - Oesophagitis [None]
  - Sensation of foreign body [None]
